FAERS Safety Report 5271133-5 (Version None)
Quarter: 2007Q1

REPORT INFORMATION
  Report Type: 
  Country: None (occurrence: None)
  Receive Date: 20070321
  Receipt Date: 20070314
  Transmission Date: 20070707
  Serious: Yes (Hospitalization)
  Sender: FDA-Public Use
  Company Number: GR-AVENTIS-200712180GDDC

PATIENT
  Age: 38 Year
  Sex: Female
  Weight: 117 kg

DRUGS (5)
  1. LANTUS [Suspect]
     Indication: DIABETES MELLITUS NON-INSULIN-DEPENDENT
     Route: 058
     Dates: start: 20070220
  2. LISPRO [Suspect]
     Indication: DIABETES MELLITUS NON-INSULIN-DEPENDENT
     Route: 058
     Dates: start: 20070220
  3. DIOVAN [Concomitant]
     Dosage: DOSE: UNK
  4. CARVEDILOL [Concomitant]
  5. GLUCOPHAGE [Concomitant]

REACTIONS (1)
  - WEIGHT INCREASED [None]
